FAERS Safety Report 6550194-7 (Version None)
Quarter: 2010Q1

REPORT INFORMATION
  Report Type: 
  Country: None (occurrence: None)
  Receive Date: 20100125
  Receipt Date: 20100112
  Transmission Date: 20100710
  Serious: Yes (Other)
  Sender: FDA-Public Use
  Company Number: US-PFIZER INC-2010008501

PATIENT
  Sex: Male

DRUGS (15)
  1. NEURONTIN [Suspect]
     Dosage: 900 MG, UNK
  2. DILANTIN-125 [Suspect]
     Indication: CEREBRAL ATROPHY
     Dosage: UNK
     Dates: start: 20081201, end: 20090101
  3. SERTRALINE HCL [Suspect]
     Dosage: UNK
  4. EFFEXOR XR [Suspect]
     Indication: DEPRESSION
     Dosage: UNK
     Dates: start: 20070101
  5. KEPPRA [Suspect]
     Indication: CEREBRAL ATROPHY
     Dosage: UNK
     Dates: start: 20081201, end: 20090101
  6. LAMICTAL [Suspect]
     Indication: CONVULSION
  7. DEPAKOTE [Concomitant]
  8. LOVENOX [Concomitant]
     Dosage: 120 MG/0.8 ML AT 0.8 MG/DAY
  9. LISINOPRIL [Concomitant]
     Dosage: 10 MG, UNK
     Route: 048
  10. SIMVASTATIN [Concomitant]
     Dosage: UNK
  11. COLACE [Concomitant]
     Dosage: 100 MG, 3X/DAY
  12. BACLOFEN [Concomitant]
     Dosage: 20 MG, DAILY
  13. TEMAZEPAM [Concomitant]
     Dosage: 15 MG, 1 OR 2 AT BEDTIME
  14. LACTULOSE [Concomitant]
     Dosage: 10 MG/15 ML
  15. BECONASE AQUA [Concomitant]
     Dosage: 0.42%
     Route: 045

REACTIONS (6)
  - CEREBRAL ARTERIOVENOUS MALFORMATION HAEMORRHAGIC [None]
  - CEREBRAL ATROPHY [None]
  - CONVULSION [None]
  - DRUG EFFECT DECREASED [None]
  - HYPERSENSITIVITY [None]
  - POSTICTAL STATE [None]
